FAERS Safety Report 4324811-6 (Version None)
Quarter: 2004Q1

REPORT INFORMATION
  Report Type: 
  Country: None (occurrence: None)
  Receive Date: 20040326
  Receipt Date: 20040318
  Transmission Date: 20041129
  Serious: Yes (Hospitalization)
  Sender: FDA-Public Use
  Company Number: FR-GLAXOSMITHKLINE-B0327272A

PATIENT
  Age: 77 Year
  Sex: Female

DRUGS (2)
  1. LAMICTAL [Suspect]
     Indication: EPILEPSY
     Route: 048
     Dates: start: 20031201, end: 20040303
  2. NEURONTIN [Concomitant]
     Indication: EPILEPSY
     Route: 048

REACTIONS (5)
  - AGRANULOCYTOSIS [None]
  - HAEMOLYTIC ANAEMIA [None]
  - LUNG DISORDER [None]
  - PYREXIA [None]
  - SEPTIC SHOCK [None]
